FAERS Safety Report 10689303 (Version 1)
Quarter: 2015Q1

REPORT INFORMATION
  Report Type: Spontaneous
  Country: CA (occurrence: CA)
  Receive Date: 20150105
  Receipt Date: 20150105
  Transmission Date: 20150720
  Serious: Yes (Other)
  Sender: FDA-Public Use
  Company Number: CA-ACCORD-027908

PATIENT
  Age: 32 Year
  Sex: Female

DRUGS (1)
  1. LETROZOLE. [Suspect]
     Active Substance: LETROZOLE
     Indication: OVULATION INDUCTION

REACTIONS (6)
  - Off label use [Unknown]
  - Foetal death [Unknown]
  - Caesarean section [None]
  - Preterm premature rupture of membranes [Unknown]
  - Multiple pregnancy [Recovered/Resolved]
  - Maternal exposure timing unspecified [None]
